FAERS Safety Report 19224334 (Version 1)
Quarter: 2021Q2

REPORT INFORMATION
  Report Type: Spontaneous
  Country: US (occurrence: US)
  Receive Date: 20210505
  Receipt Date: 20210505
  Transmission Date: 20210717
  Serious: No
  Sender: FDA-Public Use
  Company Number: US-ROCHE-2599268

PATIENT
  Age: 94 Year
  Sex: Female
  Weight: 72.19 kg

DRUGS (11)
  1. IRBESARTAN. [Concomitant]
     Active Substance: IRBESARTAN
     Indication: BLOOD PRESSURE MEASUREMENT
     Dosage: TAKES 1/2 OF A 300MG TABLET DAILY ;ONGOING: YES
     Route: 048
     Dates: start: 2019
  2. ASPIRIN. [Concomitant]
     Active Substance: ASPIRIN
     Indication: CAROTID ARTERY OCCLUSION
     Route: 048
     Dates: start: 201908
  3. AMBRISENTAN [Concomitant]
     Active Substance: AMBRISENTAN
     Indication: PULMONARY HYPERTENSION
     Route: 048
     Dates: start: 2018
  4. AREDS [Concomitant]
     Active Substance: MINERALS\VITAMINS
     Dosage: DOSE UNKNOWN BY PATIENT ;ONGOING: YES
     Route: 048
     Dates: start: 2019
  5. ASPIRIN. [Concomitant]
     Active Substance: ASPIRIN
     Dosage: PATIENT ROTATES BETWEEN 81MG AND 325MG QOD ;ONGOING: YES
     Route: 048
     Dates: start: 201908
  6. ESBRIET [Suspect]
     Active Substance: PIRFENIDONE
     Indication: PULMONARY FIBROSIS
     Dosage: 3 267 MG TABLETS ORALLY THREE TIMES A DAY
     Route: 048
     Dates: start: 202003, end: 20200509
  7. SILDENAFIL. [Concomitant]
     Active Substance: SILDENAFIL
     Indication: PULMONARY HYPERTENSION
     Route: 048
     Dates: start: 2018
  8. VASCEPA [Concomitant]
     Active Substance: ICOSAPENT ETHYL
     Dosage: 2 X 1GM CAPSULES TWICE A DAY; TOOK ^OFF AND ON^ ;ONGOING: NO
     Route: 048
     Dates: start: 201911, end: 202004
  9. ESOMEPRAZOLE. [Concomitant]
     Active Substance: ESOMEPRAZOLE MAGNESIUM
     Indication: GASTROOESOPHAGEAL REFLUX DISEASE
     Route: 048
  10. GABAPENTIN. [Concomitant]
     Active Substance: GABAPENTIN
     Indication: BACK PAIN
     Dosage: PATIENT MAY TAKE UP TO 1200MG PER DAY ;ONGOING: YES
     Route: 048
     Dates: start: 2015
  11. SYNTHROID [Concomitant]
     Active Substance: LEVOTHYROXINE SODIUM
     Indication: HYPERTHYROIDISM
     Route: 048

REACTIONS (4)
  - Diarrhoea [Recovered/Resolved]
  - Gastrooesophageal reflux disease [Recovering/Resolving]
  - Nausea [Recovered/Resolved]
  - Headache [Recovering/Resolving]

NARRATIVE: CASE EVENT DATE: 202004
